FAERS Safety Report 21261301 (Version 2)
Quarter: 2022Q4

REPORT INFORMATION
  Report Type: Spontaneous
  Country: BR (occurrence: BR)
  Receive Date: 20220827
  Receipt Date: 20221010
  Transmission Date: 20230113
  Serious: No
  Sender: FDA-Public Use
  Company Number: BR-CELLTRION INC.-2022BR013939

PATIENT

DRUGS (6)
  1. TRUXIMA [Suspect]
     Active Substance: RITUXIMAB-ABBS
     Indication: Systemic lupus erythematosus
     Dosage: 2 BOXES
     Route: 042
     Dates: start: 20220902, end: 20220902
  2. TRUXIMA [Suspect]
     Active Substance: RITUXIMAB-ABBS
     Dosage: 2 BOXES ON SEP/02/2022 AND 2 BOXES ON SEP/16/2022 AND NEXT APPLICATION ONLY IN 6 MONTHS
     Route: 042
     Dates: start: 20220916
  3. HYDROXYCHLOROQUINE SULFATE [Concomitant]
     Active Substance: HYDROXYCHLOROQUINE SULFATE
     Indication: Systemic lupus erythematosus
     Dosage: 1 PILL 4 TIMES PER WEEK
     Route: 048
     Dates: start: 2015
  4. PREDNISONE [Concomitant]
     Active Substance: PREDNISONE
     Indication: Systemic lupus erythematosus
     Dosage: 1 PILL PER DAY
     Route: 048
     Dates: start: 2015
  5. CALCIUM [Concomitant]
     Active Substance: CALCIUM
     Indication: Systemic lupus erythematosus
     Dosage: 1 PILL PER DAY
     Route: 048
     Dates: start: 2015
  6. VITAMIN D NOS [Concomitant]
     Active Substance: VITAMIN D NOS
     Indication: Systemic lupus erythematosus
     Dosage: 1 PILL PER DAY
     Route: 048
     Dates: start: 2015

REACTIONS (1)
  - Off label use [Unknown]
